FAERS Safety Report 8037927 (Version 19)
Quarter: 2017Q2

REPORT INFORMATION
  Report Type: Spontaneous
  Country: US (occurrence: US)
  Receive Date: 20110715
  Receipt Date: 20170627
  Transmission Date: 20170830
  Serious: Yes (Hospitalization, Other)
  Sender: FDA-Public Use
  Company Number: US-ASTRAZENECA-2010SE05175

PATIENT
  Age: 21275 Day
  Sex: Female
  Weight: 51.7 kg

DRUGS (99)
  1. SEROQUEL [Suspect]
     Active Substance: QUETIAPINE FUMARATE
     Indication: SEIZURE
     Route: 048
  2. SEROQUEL [Suspect]
     Active Substance: QUETIAPINE FUMARATE
     Indication: SEIZURE
     Route: 048
  3. SEROQUEL [Suspect]
     Active Substance: QUETIAPINE FUMARATE
     Indication: SLEEP DISORDER
     Route: 048
  4. SEROQUEL [Suspect]
     Active Substance: QUETIAPINE FUMARATE
     Indication: ANXIETY
     Dosage: 3-4 TABLETS AT NIGHT
     Route: 048
  5. SEROQUEL [Suspect]
     Active Substance: QUETIAPINE FUMARATE
     Indication: SEIZURE
     Dosage: GENERIC
     Route: 048
  6. SEROQUEL [Suspect]
     Active Substance: QUETIAPINE FUMARATE
     Indication: ANXIETY
     Dosage: 50.0MG UNKNOWN
     Route: 048
  7. SEROQUEL [Suspect]
     Active Substance: QUETIAPINE FUMARATE
     Indication: SEIZURE
     Dosage: 50.0MG UNKNOWN
     Route: 048
  8. LAMICTAL [Concomitant]
     Active Substance: LAMOTRIGINE
     Indication: DEPRESSION
     Route: 048
  9. LAMICTAL [Concomitant]
     Active Substance: LAMOTRIGINE
     Indication: DEPRESSION
     Route: 048
  10. LAMICTAL [Concomitant]
     Active Substance: LAMOTRIGINE
     Indication: SEIZURE
     Dosage: 200.0MG UNKNOWN
     Route: 048
     Dates: end: 2012
  11. LAMICTAL [Concomitant]
     Active Substance: LAMOTRIGINE
     Indication: ANXIETY
     Dosage: 200.0MG UNKNOWN
     Route: 048
     Dates: end: 2012
  12. LAMICTAL [Concomitant]
     Active Substance: LAMOTRIGINE
     Indication: ANXIETY
     Dosage: REDUCED DOSE UNKNOWN
     Route: 048
  13. DEPAKOTE ER [Concomitant]
     Active Substance: DIVALPROEX SODIUM
     Indication: SLEEP DISORDER
     Route: 048
  14. DEPAKOTE ER [Concomitant]
     Active Substance: DIVALPROEX SODIUM
     Indication: SEIZURE
     Route: 048
  15. CLONAZEPAM. [Concomitant]
     Active Substance: CLONAZEPAM
     Indication: INSOMNIA
     Dates: start: 2015
  16. SEROQUEL [Suspect]
     Active Substance: QUETIAPINE FUMARATE
     Indication: SLEEP DISORDER
     Route: 048
     Dates: start: 2009
  17. SEROQUEL [Suspect]
     Active Substance: QUETIAPINE FUMARATE
     Indication: ANXIETY
     Route: 048
     Dates: start: 2009
  18. SEROQUEL [Suspect]
     Active Substance: QUETIAPINE FUMARATE
     Indication: SEIZURE
     Route: 048
  19. SEROQUEL [Suspect]
     Active Substance: QUETIAPINE FUMARATE
     Indication: SEIZURE
     Route: 048
  20. SEROQUEL [Suspect]
     Active Substance: QUETIAPINE FUMARATE
     Indication: ANXIETY
     Route: 048
  21. SEROQUEL [Suspect]
     Active Substance: QUETIAPINE FUMARATE
     Indication: ANXIETY
     Dosage: GENERIC
     Route: 048
  22. SEROQUEL [Suspect]
     Active Substance: QUETIAPINE FUMARATE
     Indication: SLEEP DISORDER
     Dosage: 25.0MG UNKNOWN
     Route: 048
  23. SEROQUEL [Suspect]
     Active Substance: QUETIAPINE FUMARATE
     Indication: SEIZURE
     Dosage: 50.0MG UNKNOWN
     Route: 048
  24. IRON [Suspect]
     Active Substance: IRON
     Indication: ANAEMIA
     Dosage: 1 DF, DAILY (NO MORE CONSIDERED AS AZ PRODUCT )
     Route: 048
     Dates: start: 20130803, end: 20130807
  25. LAMICTAL [Concomitant]
     Active Substance: LAMOTRIGINE
     Indication: ANXIETY
     Route: 048
  26. LAMICTAL [Concomitant]
     Active Substance: LAMOTRIGINE
     Indication: ANXIETY
     Dosage: 150.0MG UNKNOWN
     Route: 048
     Dates: start: 2012
  27. LAMICTAL [Concomitant]
     Active Substance: LAMOTRIGINE
     Indication: ANXIETY
     Dosage: 150.0MG UNKNOWN
     Route: 048
  28. DEPAKOTE ER [Concomitant]
     Active Substance: DIVALPROEX SODIUM
     Indication: SEIZURE
     Route: 048
     Dates: start: 2009
  29. DEPAKOTE ER [Concomitant]
     Active Substance: DIVALPROEX SODIUM
     Indication: SEIZURE
     Route: 048
  30. SEROQUEL [Suspect]
     Active Substance: QUETIAPINE FUMARATE
     Indication: ANXIETY
     Route: 048
  31. SEROQUEL [Suspect]
     Active Substance: QUETIAPINE FUMARATE
     Indication: SEIZURE
     Route: 048
     Dates: start: 2010
  32. SEROQUEL [Suspect]
     Active Substance: QUETIAPINE FUMARATE
     Indication: ANXIETY
     Route: 048
     Dates: start: 2011
  33. SEROQUEL [Suspect]
     Active Substance: QUETIAPINE FUMARATE
     Indication: SLEEP DISORDER
     Dosage: GENERIC
     Route: 048
  34. SEROQUEL [Suspect]
     Active Substance: QUETIAPINE FUMARATE
     Indication: SEIZURE
     Dosage: 50.0MG UNKNOWN
     Route: 048
     Dates: start: 2012, end: 201411
  35. SEROQUEL [Suspect]
     Active Substance: QUETIAPINE FUMARATE
     Indication: ANXIETY
     Dosage: 50.0MG UNKNOWN
     Route: 048
     Dates: start: 2012, end: 201411
  36. SEROQUEL [Suspect]
     Active Substance: QUETIAPINE FUMARATE
     Indication: SEIZURE
     Dosage: 50.0MG UNKNOWN
     Route: 048
     Dates: start: 201411
  37. LAMICTAL [Concomitant]
     Active Substance: LAMOTRIGINE
     Indication: DEPRESSION
     Route: 048
  38. LAMICTAL [Concomitant]
     Active Substance: LAMOTRIGINE
     Indication: DEPRESSION
     Dosage: 200.0MG UNKNOWN
     Route: 048
     Dates: end: 2012
  39. DEPAKOTE ER [Concomitant]
     Active Substance: DIVALPROEX SODIUM
     Indication: SLEEP DISORDER
     Route: 048
     Dates: start: 2009
  40. SEROQUEL [Suspect]
     Active Substance: QUETIAPINE FUMARATE
     Indication: SLEEP DISORDER
     Route: 048
  41. SEROQUEL [Suspect]
     Active Substance: QUETIAPINE FUMARATE
     Indication: ANXIETY
     Route: 048
     Dates: start: 2008
  42. SEROQUEL [Suspect]
     Active Substance: QUETIAPINE FUMARATE
     Indication: ANXIETY
     Route: 048
     Dates: start: 2009
  43. SEROQUEL [Suspect]
     Active Substance: QUETIAPINE FUMARATE
     Indication: SLEEP DISORDER
     Route: 048
  44. SEROQUEL [Suspect]
     Active Substance: QUETIAPINE FUMARATE
     Indication: ANXIETY
     Route: 048
     Dates: start: 2010
  45. SEROQUEL [Suspect]
     Active Substance: QUETIAPINE FUMARATE
     Indication: SEIZURE
     Route: 048
     Dates: start: 2011
  46. SEROQUEL [Suspect]
     Active Substance: QUETIAPINE FUMARATE
     Indication: SLEEP DISORDER
     Dosage: 50.0MG UNKNOWN
     Route: 048
     Dates: start: 201411
  47. SEROQUEL [Suspect]
     Active Substance: QUETIAPINE FUMARATE
     Indication: ANXIETY
     Dosage: 50.0MG UNKNOWN
     Route: 048
     Dates: start: 201411
  48. SEROQUEL [Suspect]
     Active Substance: QUETIAPINE FUMARATE
     Indication: SLEEP DISORDER
     Dosage: 50.0MG UNKNOWN
     Route: 048
  49. LAMICTAL [Concomitant]
     Active Substance: LAMOTRIGINE
     Indication: DEPRESSION
     Route: 048
     Dates: start: 2009
  50. LAMICTAL [Concomitant]
     Active Substance: LAMOTRIGINE
     Indication: SEIZURE
     Route: 048
  51. LAMICTAL [Concomitant]
     Active Substance: LAMOTRIGINE
     Indication: DEPRESSION
     Dosage: 200.0MG UNKNOWN
     Route: 048
  52. DEPAKOTE ER [Concomitant]
     Active Substance: DIVALPROEX SODIUM
     Indication: SEIZURE
     Dosage: DAILY
     Route: 048
  53. DEPAKOTE ER [Concomitant]
     Active Substance: DIVALPROEX SODIUM
     Indication: SLEEP DISORDER
     Dosage: DAILY
     Route: 048
  54. DILANTIN [Concomitant]
     Active Substance: PHENYTOIN
     Indication: SEIZURE
     Dosage: DAILY
     Route: 048
  55. SEROQUEL [Suspect]
     Active Substance: QUETIAPINE FUMARATE
     Indication: SEIZURE
     Route: 048
     Dates: start: 200911
  56. SEROQUEL [Suspect]
     Active Substance: QUETIAPINE FUMARATE
     Indication: SLEEP DISORDER
     Route: 048
     Dates: start: 2009
  57. SEROQUEL [Suspect]
     Active Substance: QUETIAPINE FUMARATE
     Indication: ANXIETY
     Route: 048
  58. SEROQUEL [Suspect]
     Active Substance: QUETIAPINE FUMARATE
     Indication: SLEEP DISORDER
     Route: 048
     Dates: start: 2011
  59. SEROQUEL [Suspect]
     Active Substance: QUETIAPINE FUMARATE
     Indication: ANXIETY
     Dosage: 50.0MG UNKNOWN
     Route: 048
  60. LAMICTAL [Concomitant]
     Active Substance: LAMOTRIGINE
     Indication: SEIZURE
     Dosage: 150.0MG UNKNOWN
     Route: 048
     Dates: start: 2012
  61. LAMICTAL [Concomitant]
     Active Substance: LAMOTRIGINE
     Indication: DEPRESSION
     Dosage: 150.0MG UNKNOWN
     Route: 048
     Dates: start: 2012
  62. LAMICTAL [Concomitant]
     Active Substance: LAMOTRIGINE
     Indication: SEIZURE
     Dosage: 200.0MG UNKNOWN
     Route: 048
  63. LAMICTAL [Concomitant]
     Active Substance: LAMOTRIGINE
     Indication: ANXIETY
     Dosage: 200.0MG UNKNOWN
     Route: 048
  64. LAMICTAL [Concomitant]
     Active Substance: LAMOTRIGINE
     Indication: SEIZURE
     Dosage: REDUCED DOSE UNKNOWN
     Route: 048
  65. LAMICTAL [Concomitant]
     Active Substance: LAMOTRIGINE
     Indication: DEPRESSION
     Dosage: REDUCED DOSE UNKNOWN
     Route: 048
  66. DEPAKOTE ER [Concomitant]
     Active Substance: DIVALPROEX SODIUM
     Indication: SLEEP DISORDER
     Route: 048
  67. SEROQUEL [Suspect]
     Active Substance: QUETIAPINE FUMARATE
     Indication: ANXIETY
     Route: 048
  68. SEROQUEL [Suspect]
     Active Substance: QUETIAPINE FUMARATE
     Indication: SEIZURE
     Route: 048
     Dates: start: 2008
  69. SEROQUEL [Suspect]
     Active Substance: QUETIAPINE FUMARATE
     Indication: SLEEP DISORDER
     Route: 048
     Dates: start: 2008
  70. SEROQUEL [Suspect]
     Active Substance: QUETIAPINE FUMARATE
     Indication: SLEEP DISORDER
     Route: 048
     Dates: start: 200911
  71. SEROQUEL [Suspect]
     Active Substance: QUETIAPINE FUMARATE
     Indication: SLEEP DISORDER
     Route: 048
  72. SEROQUEL [Suspect]
     Active Substance: QUETIAPINE FUMARATE
     Indication: SLEEP DISORDER
     Route: 048
  73. SEROQUEL [Suspect]
     Active Substance: QUETIAPINE FUMARATE
     Indication: SEIZURE
     Dosage: 25.0MG UNKNOWN
     Route: 048
  74. SEROQUEL [Suspect]
     Active Substance: QUETIAPINE FUMARATE
     Indication: ANXIETY
     Dosage: 25.0MG UNKNOWN
     Route: 048
  75. SEROQUEL [Suspect]
     Active Substance: QUETIAPINE FUMARATE
     Indication: SLEEP DISORDER
     Dosage: 50.0MG UNKNOWN
     Route: 048
  76. LAMICTAL [Concomitant]
     Active Substance: LAMOTRIGINE
     Indication: SEIZURE
     Route: 048
     Dates: start: 2009
  77. LAMICTAL [Concomitant]
     Active Substance: LAMOTRIGINE
     Indication: ANXIETY
     Route: 048
  78. LAMICTAL [Concomitant]
     Active Substance: LAMOTRIGINE
     Indication: DEPRESSION
     Dosage: DAILY
     Route: 048
  79. LAMICTAL [Concomitant]
     Active Substance: LAMOTRIGINE
     Indication: ANXIETY
     Dosage: DAILY
     Route: 048
  80. LAMICTAL [Concomitant]
     Active Substance: LAMOTRIGINE
     Indication: DEPRESSION
     Dosage: 150.0MG UNKNOWN
     Route: 048
  81. SEROQUEL [Suspect]
     Active Substance: QUETIAPINE FUMARATE
     Indication: ANXIETY
     Route: 048
     Dates: start: 200911
  82. SEROQUEL [Suspect]
     Active Substance: QUETIAPINE FUMARATE
     Indication: SEIZURE
     Route: 048
  83. SEROQUEL [Suspect]
     Active Substance: QUETIAPINE FUMARATE
     Indication: SEIZURE
     Dosage: 3-4 TABLETS AT NIGHT
     Route: 048
  84. SEROQUEL [Suspect]
     Active Substance: QUETIAPINE FUMARATE
     Indication: SLEEP DISORDER
     Route: 048
     Dates: start: 2010
  85. LAMICTAL [Concomitant]
     Active Substance: LAMOTRIGINE
     Indication: SEIZURE
     Route: 048
  86. LAMICTAL [Concomitant]
     Active Substance: LAMOTRIGINE
     Indication: SEIZURE
     Route: 048
  87. LAMICTAL [Concomitant]
     Active Substance: LAMOTRIGINE
     Indication: ANXIETY
     Route: 048
  88. LAMICTAL [Concomitant]
     Active Substance: LAMOTRIGINE
     Indication: SEIZURE
     Dosage: DAILY
     Route: 048
  89. LAMICTAL [Concomitant]
     Active Substance: LAMOTRIGINE
     Indication: SEIZURE
     Dosage: 150.0MG UNKNOWN
     Route: 048
  90. DEPAKOTE ER [Concomitant]
     Active Substance: DIVALPROEX SODIUM
     Indication: SLEEP DISORDER
     Route: 048
  91. SEROQUEL [Suspect]
     Active Substance: QUETIAPINE FUMARATE
     Indication: SEIZURE
     Route: 048
     Dates: start: 2009
  92. SEROQUEL [Suspect]
     Active Substance: QUETIAPINE FUMARATE
     Indication: SEIZURE
     Route: 048
     Dates: start: 2009
  93. SEROQUEL [Suspect]
     Active Substance: QUETIAPINE FUMARATE
     Indication: ANXIETY
     Route: 048
  94. SEROQUEL [Suspect]
     Active Substance: QUETIAPINE FUMARATE
     Indication: SLEEP DISORDER
     Dosage: 3-4 TABLETS AT NIGHT
     Route: 048
  95. SEROQUEL [Suspect]
     Active Substance: QUETIAPINE FUMARATE
     Indication: SLEEP DISORDER
     Dosage: 50.0MG UNKNOWN
     Route: 048
     Dates: start: 2012, end: 201411
  96. LAMICTAL [Concomitant]
     Active Substance: LAMOTRIGINE
     Indication: ANXIETY
     Route: 048
     Dates: start: 2009
  97. DEPAKOTE ER [Concomitant]
     Active Substance: DIVALPROEX SODIUM
     Indication: SEIZURE
     Route: 048
  98. DEPAKOTE ER [Concomitant]
     Active Substance: DIVALPROEX SODIUM
     Indication: SEIZURE
     Route: 048
  99. DEPAKOTE ER [Concomitant]
     Active Substance: DIVALPROEX SODIUM
     Indication: SLEEP DISORDER
     Route: 048

REACTIONS (40)
  - Abnormal sleep-related event [Unknown]
  - Fall [Unknown]
  - Dry mouth [Unknown]
  - Somnolence [Unknown]
  - Headache [Unknown]
  - Drug dose omission [Unknown]
  - Intentional product misuse [Unknown]
  - Disorientation [Recovered/Resolved]
  - Focal dyscognitive seizures [Unknown]
  - Gait disturbance [Unknown]
  - Emotional distress [Unknown]
  - Muscle spasms [Not Recovered/Not Resolved]
  - Amnesia [Unknown]
  - Drug intolerance [Unknown]
  - Malaise [Unknown]
  - Joint injury [Recovered/Resolved]
  - Viral upper respiratory tract infection [Unknown]
  - Bronchitis [Unknown]
  - Tremor [Unknown]
  - Product use in unapproved indication [Not Recovered/Not Resolved]
  - Memory impairment [Unknown]
  - Hypophagia [Unknown]
  - Dizziness [Unknown]
  - Movement disorder [Unknown]
  - Off label use [Unknown]
  - Road traffic accident [Unknown]
  - Pelvic fracture [Unknown]
  - Stress [Unknown]
  - Insomnia [Unknown]
  - Impaired driving ability [Unknown]
  - Fatigue [Unknown]
  - Product substitution issue [Unknown]
  - Generalised tonic-clonic seizure [Recovered/Resolved]
  - Depression [Unknown]
  - Head injury [Unknown]
  - Pneumonia [Unknown]
  - Intentional product use issue [Unknown]
  - Sinusitis [Unknown]
  - Feeling drunk [Unknown]
  - Balance disorder [Unknown]

NARRATIVE: CASE EVENT DATE: 20110610
